FAERS Safety Report 18622811 (Version 1)
Quarter: 2020Q4

REPORT INFORMATION
  Report Type: Spontaneous
  Country: JP (occurrence: JP)
  Receive Date: 20201216
  Receipt Date: 20201216
  Transmission Date: 20210114
  Serious: Yes (Hospitalization)
  Sender: FDA-Public Use
  Company Number: JP-ROCHE-263659

PATIENT
  Age: 84 Year
  Sex: Female

DRUGS (4)
  1. GASTER [Concomitant]
     Active Substance: FAMOTIDINE
     Indication: ENTEROCOLITIS HAEMORRHAGIC
     Route: 041
  2. TRANSAMIN [Concomitant]
     Active Substance: TRANEXAMIC ACID
     Indication: ENTEROCOLITIS HAEMORRHAGIC
     Route: 041
  3. ADONA [Concomitant]
     Indication: ENTEROCOLITIS HAEMORRHAGIC
     Route: 041
  4. ROCEPHIN [Suspect]
     Active Substance: CEFTRIAXONE SODIUM
     Indication: ENTEROCOLITIS HAEMORRHAGIC
     Route: 041
     Dates: start: 20010610, end: 20010616

REACTIONS (1)
  - Epilepsy [Recovered/Resolved]

NARRATIVE: CASE EVENT DATE: 20010615
